FAERS Safety Report 23154944 (Version 1)
Quarter: 2023Q4

REPORT INFORMATION
  Report Type: Spontaneous
  Country: None (occurrence: DE)
  Receive Date: 20231107
  Receipt Date: 20231107
  Transmission Date: 20240110
  Serious: Yes (Life-Threatening, Hospitalization, Other)
  Sender: FDA-Public Use
  Company Number: DE-B.Braun Medical Inc.-2147947

PATIENT
  Sex: Male
  Weight: 75.8 kg

DRUGS (12)
  1. ACETAMINOPHEN [Suspect]
     Active Substance: ACETAMINOPHEN
     Route: 042
  2. AZACITIDINE [Suspect]
     Active Substance: AZACITIDINE
  3. NOVALGIN (METAMIZOLE SODIUM) [Suspect]
     Active Substance: METAMIZOLE SODIUM
  4. VENETOCLAX [Suspect]
     Active Substance: VENETOCLAX
  5. GLANDOMED [Concomitant]
  6. ESCITALOPRAM [Concomitant]
     Active Substance: ESCITALOPRAM OXALATE
  7. MIRTAZAPINE [Concomitant]
     Active Substance: MIRTAZAPINE
  8. AMOXICILLIN/CLAVULAN IC ACID AB [Concomitant]
  9. POSACONAZOLE [Concomitant]
     Active Substance: POSACONAZOLE
  10. CANDESARTAN [Concomitant]
     Active Substance: CANDESARTAN
  11. ENOXAPARIN [Concomitant]
     Active Substance: ENOXAPARIN
  12. CIPRALEX [Concomitant]
     Active Substance: ESCITALOPRAM OXALATE

REACTIONS (2)
  - Thrombocytopenia [None]
  - Febrile neutropenia [None]
